FAERS Safety Report 17024538 (Version 3)
Quarter: 2020Q1

REPORT INFORMATION
  Report Type: Report from Study
  Country: CA (occurrence: CA)
  Receive Date: 20191113
  Receipt Date: 20200220
  Transmission Date: 20200409
  Serious: Yes (Hospitalization)
  Sender: FDA-Public Use
  Company Number: CA-IPSEN BIOPHARMACEUTICALS, INC.-2019-21294

PATIENT
  Age: 48 Year
  Sex: Female

DRUGS (2)
  1. SOMATULINE AUTOGEL [Suspect]
     Active Substance: LANREOTIDE ACETATE
     Indication: NEUROENDOCRINE TUMOUR
     Route: 058
     Dates: start: 20191008
  2. ZOMETA [Suspect]
     Active Substance: ZOLEDRONIC ACID
     Indication: BONE DEVELOPMENT ABNORMAL
     Dosage: NOT REPORTED
     Route: 065

REACTIONS (9)
  - Palpitations [Unknown]
  - Burning sensation [Unknown]
  - Dry throat [Recovered/Resolved]
  - Influenza like illness [Unknown]
  - Tongue dry [Recovered/Resolved]
  - Tongue dry [Unknown]
  - Dry throat [Unknown]
  - Palpitations [Recovered/Resolved]
  - Burning sensation [Recovered/Resolved]

NARRATIVE: CASE EVENT DATE: 20191008
